FAERS Safety Report 7389124-7 (Version None)
Quarter: 2011Q2

REPORT INFORMATION
  Report Type: 
  Country: None (occurrence: None)
  Receive Date: 20110401
  Receipt Date: 20110328
  Transmission Date: 20111010
  Serious: Yes (Death, Hospitalization)
  Sender: FDA-Public Use
  Company Number: CA-ROCHE-764127

PATIENT
  Sex: Male
  Weight: 89.1 kg

DRUGS (13)
  1. LORAZEPAM [Concomitant]
     Dosage: 1-2 MG SL PRN
     Dates: start: 20110112
  2. SPIRIVA [Concomitant]
     Dosage: PUFFS DAILY
     Dates: start: 20101115
  3. RO 5190591 (ITMN-191) [Suspect]
     Dosage: LAST DOSE PRIOR TO SAE: 05 MAR 2011
     Route: 048
     Dates: start: 20110110, end: 20110305
  4. CEFUROXIME [Concomitant]
     Indication: LUNG INFECTION
     Route: 048
     Dates: start: 20110124, end: 20110203
  5. HYDROXYZINE [Concomitant]
     Indication: PRURITUS
     Dosage: AS REQUIRED
     Route: 048
     Dates: start: 20110124
  6. ACYCLOVIR [Concomitant]
     Indication: HERPES SIMPLEX
     Dosage: AS REQUIRED
     Route: 049
     Dates: start: 20100201
  7. RIBAVIRIN [Suspect]
     Dosage: LAST DOSE PRIOR TO SAE: 05 MAR 2011
     Route: 048
     Dates: start: 20110110, end: 20110305
  8. PEGINTERFERON ALFA-2A [Suspect]
     Dosage: LAST DOSE PRIOR TO SAE: 28 FEB 2011, FORM: LIQUID
     Route: 058
     Dates: start: 20110110, end: 20110305
  9. OXYCONTIN [Concomitant]
     Indication: ARTHRALGIA
     Route: 048
     Dates: start: 20050101
  10. ECTOSONE [Concomitant]
     Indication: ECZEMA
     Dosage: AS REQUIRED
     Route: 061
     Dates: start: 19700101
  11. RITONAVIR [Suspect]
     Dosage: LAST DOSE PRIOR TO SAE: 05 MAR 2011
     Route: 048
     Dates: start: 20110110, end: 20110305
  12. CITALOPRAM HYDROBROMIDE [Concomitant]
     Indication: ANXIETY
     Route: 048
     Dates: start: 20070101
  13. LIVER TONIC [Concomitant]

REACTIONS (1)
  - PNEUMONIA [None]
